FAERS Safety Report 16108339 (Version 3)
Quarter: 2019Q3

REPORT INFORMATION
  Report Type: Report from Study
  Country: None (occurrence: TR)
  Receive Date: 20190322
  Receipt Date: 20190924
  Transmission Date: 20191004
  Serious: Yes (Hospitalization)
  Sender: FDA-Public Use
  Company Number: TR-ABBVIE-19S-161-2712377-00

PATIENT
  Sex: Male

DRUGS (3)
  1. DUODOPA [Suspect]
     Active Substance: CARBIDOPA\LEVODOPA
     Dosage: MD (ML):4.30 CD (ML):4.00 ED (ML):1.00
     Route: 050
     Dates: end: 201906
  2. DUODOPA [Suspect]
     Active Substance: CARBIDOPA\LEVODOPA
     Indication: PARKINSON^S DISEASE
     Dosage: MD(ML):4.30 CDML):3.40 EDML):1.00
     Route: 050
     Dates: start: 20180529
  3. DUODOPA [Suspect]
     Active Substance: CARBIDOPA\LEVODOPA
     Dosage: MD (ML):4.30 CD (ML):5.2 ED (ML):1.00
     Route: 050
     Dates: start: 201906

REACTIONS (5)
  - Pelvic fracture [Recovered/Resolved]
  - Decubitus ulcer [Unknown]
  - Muscle atrophy [Unknown]
  - Osteoporosis [Not Recovered/Not Resolved]
  - Neuropathy peripheral [Unknown]

NARRATIVE: CASE EVENT DATE: 2019
